FAERS Safety Report 11837092 (Version 2)
Quarter: 2016Q1

REPORT INFORMATION
  Report Type: Spontaneous
  Country: US (occurrence: US)
  Receive Date: 20151215
  Receipt Date: 20160112
  Transmission Date: 20160525
  Serious: No
  Sender: FDA-Public Use
  Company Number: US-TAKEDA-2015MPI008398

PATIENT

DRUGS (1)
  1. VELCADE [Suspect]
     Active Substance: BORTEZOMIB
     Indication: PRODUCT USED FOR UNKNOWN INDICATION
     Route: 065

REACTIONS (1)
  - Disease progression [Unknown]
